FAERS Safety Report 22095999 (Version 2)
Quarter: 2023Q1

REPORT INFORMATION
  Report Type: Report from Study
  Country: US (occurrence: US)
  Receive Date: 20230315
  Receipt Date: 20230319
  Transmission Date: 20230418
  Serious: Yes (Other)
  Sender: FDA-Public Use
  Company Number: US-ABBVIE-4340400

PATIENT
  Sex: Male

DRUGS (2)
  1. HUMIRA [Suspect]
     Active Substance: ADALIMUMAB
     Indication: Psoriasis
     Dosage: DOSE INCREASED
     Route: 058
  2. HUMIRA [Suspect]
     Active Substance: ADALIMUMAB
     Indication: Rheumatoid arthritis
     Route: 058

REACTIONS (10)
  - Haemorrhoids [Recovered/Resolved]
  - Laboratory test abnormal [Unknown]
  - Rheumatoid arthritis [Recovering/Resolving]
  - Arthralgia [Not Recovered/Not Resolved]
  - Renal function test abnormal [Unknown]
  - Hordeolum [Recovered/Resolved]
  - Nausea [Recovering/Resolving]
  - Musculoskeletal pain [Unknown]
  - Renal pain [Recovering/Resolving]
  - Nephrolithiasis [Recovering/Resolving]
